FAERS Safety Report 4614058-8 (Version None)
Quarter: 2005Q1

REPORT INFORMATION
  Report Type: 
  Country: None (occurrence: None)
  Receive Date: 20050316
  Receipt Date: 20050301
  Transmission Date: 20050727
  Serious: Yes (Death, Hospitalization)
  Sender: FDA-Public Use
  Company Number: DSA_26045_2005

PATIENT
  Age: 38 Year
  Sex: Male

DRUGS (6)
  1. TAVOR [Suspect]
     Indication: BIPOLAR I DISORDER
     Dosage: 12 MG QD IV
     Route: 042
     Dates: start: 20050107, end: 20050111
  2. DEPAKENE [Suspect]
     Indication: BIPOLAR I DISORDER
     Dosage: 1000 MG QD PO
     Route: 048
     Dates: start: 20041230, end: 20050111
  3. ZYPREXA [Suspect]
     Indication: BIPOLAR I DISORDER
     Dosage: 20 MG QD PO
     Route: 048
     Dates: start: 20041223, end: 20050111
  4. KCL-RETARD [Concomitant]
  5. PURSENNID [Concomitant]
  6. EN [Concomitant]

REACTIONS (3)
  - CARDIAC ARREST [None]
  - ELECTROCARDIOGRAM ABNORMAL [None]
  - LOSS OF CONSCIOUSNESS [None]
